FAERS Safety Report 12436189 (Version 1)
Quarter: 2016Q2

REPORT INFORMATION
  Report Type: Spontaneous
  Country: US (occurrence: US)
  Receive Date: 20160605
  Receipt Date: 20160605
  Transmission Date: 20160815
  Serious: No
  Sender: FDA-Public Use
  Company Number: US-BIOGEN-2016BI00237689

PATIENT
  Sex: Female

DRUGS (1)
  1. AVONEX [Suspect]
     Active Substance: INTERFERON BETA-1A
     Indication: MULTIPLE SCLEROSIS
     Dates: start: 20131201

REACTIONS (12)
  - Eye pain [Unknown]
  - Cataract [Unknown]
  - Arthralgia [Unknown]
  - Glaucoma [Unknown]
  - Ataxia [Unknown]
  - Alopecia [Unknown]
  - Asthenia [Unknown]
  - Gait disturbance [Unknown]
  - Hypoaesthesia [Unknown]
  - Dysarthria [Unknown]
  - Photophobia [Unknown]
  - Musculoskeletal stiffness [Unknown]
